FAERS Safety Report 7254856-8 (Version None)
Quarter: 2011Q1

REPORT INFORMATION
  Report Type: 
  Country: None (occurrence: None)
  Receive Date: 20110129
  Receipt Date: 20100308
  Transmission Date: 20110831
  Serious: No
  Sender: FDA-Public Use
  Company Number: US-ABBOTT-10P-163-0631511-00

PATIENT
  Age: 51 Year
  Sex: Female

DRUGS (3)
  1. METHOTREXATE [Concomitant]
  2. METHOTREXATE [Concomitant]
     Indication: PRODUCT USED FOR UNKNOWN INDICATION
  3. HUMIRA [Suspect]
     Indication: RHEUMATOID ARTHRITIS
     Route: 058
     Dates: start: 20080701, end: 20091201

REACTIONS (1)
  - PNEUMONITIS [None]
